FAERS Safety Report 8425665 (Version 6)
Quarter: 2013Q3

REPORT INFORMATION
  Report Type: Report from Study
  Country: CA (occurrence: CA)
  Receive Date: 20120224
  Receipt Date: 20130827
  Transmission Date: 20140515
  Serious: Yes (Hospitalization, Other)
  Sender: FDA-Public Use
  Company Number: PHHY2012CA014281

PATIENT
  Age: 75 Year
  Sex: Female

DRUGS (5)
  1. SANDOSTATIN LAR [Suspect]
     Indication: ACROMEGALY
     Dosage: 30 MG,  EVERY 4 WEEKS
     Route: 030
     Dates: start: 20100804
  2. TAPAZOLE [Concomitant]
  3. COUMADIN [Concomitant]
  4. IRON [Concomitant]
  5. VITAMIN D [Concomitant]

REACTIONS (8)
  - Embolic stroke [Recovered/Resolved with Sequelae]
  - Dysstasia [Recovered/Resolved with Sequelae]
  - Hypoaesthesia [Recovered/Resolved with Sequelae]
  - Haemorrhage [Unknown]
  - Blood pressure increased [Unknown]
  - Heart rate decreased [Unknown]
  - Local swelling [Unknown]
  - Stress [Unknown]
